FAERS Safety Report 7448394-7 (Version None)
Quarter: 2011Q2

REPORT INFORMATION
  Report Type: 
  Country: None (occurrence: None)
  Receive Date: 20110429
  Receipt Date: 20100517
  Transmission Date: 20111010
  Serious: No
  Sender: FDA-Public Use
  Company Number: US-ASTRAZENECA-2010SE22464

PATIENT
  Sex: Female
  Weight: 72.6 kg

DRUGS (3)
  1. NEXIUM [Suspect]
     Route: 048
     Dates: start: 20000501
  2. LIPITOR [Concomitant]
  3. NOSE SPRAY [Concomitant]

REACTIONS (2)
  - MUSCLE SPASMS [None]
  - DYSGEUSIA [None]
